FAERS Safety Report 25419520 (Version 1)
Quarter: 2025Q2

REPORT INFORMATION
  Report Type: Spontaneous
  Country: TW (occurrence: TW)
  Receive Date: 20250610
  Receipt Date: 20250610
  Transmission Date: 20250717
  Serious: Yes (Other)
  Sender: EISAI
  Company Number: TW-Eisai-EC-2025-190559

PATIENT
  Age: 59 Year
  Sex: Male
  Weight: 56 kg

DRUGS (2)
  1. LENVIMA [Suspect]
     Active Substance: LENVATINIB
     Indication: Hepatic cancer
     Dates: start: 20230419, end: 20231210
  2. LENVIMA [Suspect]
     Active Substance: LENVATINIB
     Dates: start: 20231211, end: 20250430

REACTIONS (1)
  - Thrombocytopenia [Not Recovered/Not Resolved]

NARRATIVE: CASE EVENT DATE: 20250414
